FAERS Safety Report 7767443-X (Version None)
Quarter: 2011Q3

REPORT INFORMATION
  Report Type: 
  Country: None (occurrence: None)
  Receive Date: 20110922
  Receipt Date: 20110131
  Transmission Date: 20111222
  Serious: No
  Sender: FDA-Public Use
  Company Number: US-ASTRAZENECA-2011SE05428

PATIENT
  Age: 63 Year
  Sex: Male
  Weight: 125.6 kg

DRUGS (10)
  1. SEROQUEL [Suspect]
     Route: 048
     Dates: start: 20110101, end: 20110101
  2. OXYCODONE HCL [Concomitant]
  3. NIFEDIPINE [Concomitant]
  4. WELLBUTRIN [Concomitant]
  5. MAXZIDE [Concomitant]
  6. XANAX [Concomitant]
  7. SEROQUEL [Suspect]
     Indication: BIPOLAR DISORDER
     Route: 048
     Dates: start: 20060101, end: 20110101
  8. SEROQUEL [Suspect]
     Route: 048
     Dates: start: 20110101
  9. TOPAMAX [Concomitant]
  10. ZANAFLEX [Concomitant]

REACTIONS (5)
  - WEIGHT INCREASED [None]
  - DEPRESSION [None]
  - NO ADVERSE EVENT [None]
  - THERAPEUTIC RESPONSE UNEXPECTED [None]
  - NIGHTMARE [None]
